FAERS Safety Report 9216393 (Version 2)
Quarter: 2013Q2

REPORT INFORMATION
  Report Type: Report from Study
  Country: CA (occurrence: CA)
  Receive Date: 20130408
  Receipt Date: 20130422
  Transmission Date: 20140414
  Serious: Yes (Other)
  Sender: FDA-Public Use
  Company Number: PHHY2011CA79981

PATIENT
  Age: 73 Year
  Sex: Female

DRUGS (12)
  1. ACLASTA [Suspect]
     Indication: OSTEOPOROSIS
     Dosage: 5 MG, UNK
     Route: 042
     Dates: start: 20080918
  2. ACLASTA [Suspect]
     Dosage: 5 MG, UNK
     Route: 042
     Dates: start: 20091016
  3. ACLASTA [Suspect]
     Dosage: 5 MG, UNK
     Route: 042
     Dates: start: 20101015
  4. ACLASTA [Suspect]
     Dosage: 5 MG, UNK
     Route: 042
     Dates: start: 20120427
  5. NORVASC [Concomitant]
  6. CRESTOR [Concomitant]
  7. METFORMIN [Concomitant]
  8. RABEPRAZOLE [Concomitant]
  9. ADVAIR [Concomitant]
  10. SPIRIVA [Concomitant]
  11. CALCIUM [Concomitant]
  12. VITAMIN D3 [Concomitant]

REACTIONS (3)
  - Nephropathy [Not Recovered/Not Resolved]
  - Protein urine present [Unknown]
  - Type 2 diabetes mellitus [Not Recovered/Not Resolved]
